FAERS Safety Report 16314144 (Version 10)
Quarter: 2021Q2

REPORT INFORMATION
  Report Type: Report from Study
  Country: GB (occurrence: GB)
  Receive Date: 20190515
  Receipt Date: 20210624
  Transmission Date: 20210716
  Serious: Yes (Hospitalization)
  Sender: FDA-Public Use
  Company Number: GB-ROCHE-2277503

PATIENT
  Age: 78 Year
  Sex: Male
  Weight: 67.6 kg

DRUGS (23)
  1. AMLODIPINE [Concomitant]
     Active Substance: AMLODIPINE BESYLATE
     Indication: MYOCARDIAL ISCHAEMIA
     Route: 048
     Dates: start: 201610, end: 20190529
  2. APIXABAN [Concomitant]
     Active Substance: APIXABAN
     Indication: MYOCARDIAL ISCHAEMIA
     Route: 048
     Dates: start: 201712
  3. INDAPAMIDE. [Concomitant]
     Active Substance: INDAPAMIDE
     Indication: MYOCARDIAL ISCHAEMIA
     Route: 048
     Dates: start: 201802
  4. DULCOLAXO [Concomitant]
     Active Substance: BISACODYL
     Indication: CONSTIPATION
     Route: 048
     Dates: start: 201901
  5. BISOPROLOL [Concomitant]
     Active Substance: BISOPROLOL
     Indication: MYOCARDIAL ISCHAEMIA
     Route: 048
     Dates: start: 201710
  6. LANSOPRAZOLE. [Concomitant]
     Active Substance: LANSOPRAZOLE
     Indication: HIATUS HERNIA
     Route: 048
     Dates: start: 200104
  7. FERROUS GLUCONATE [Concomitant]
     Active Substance: FERROUS GLUCONATE
     Indication: ANAEMIA
     Route: 048
     Dates: start: 201803, end: 20190530
  8. HYDROXYCHLOROQUINE [Concomitant]
     Active Substance: HYDROXYCHLOROQUINE
     Indication: RHEUMATOID ARTHRITIS
     Route: 048
     Dates: start: 201211
  9. RAMIPRIL. [Concomitant]
     Active Substance: RAMIPRIL
     Indication: MYOCARDIAL ISCHAEMIA
     Route: 048
     Dates: start: 200501, end: 20190530
  10. SULFASALAZINE. [Concomitant]
     Active Substance: SULFASALAZINE
     Indication: RHEUMATOID ARTHRITIS
     Route: 048
     Dates: start: 199603
  11. RITUXIMAB. [Suspect]
     Active Substance: RITUXIMAB
     Indication: DIFFUSE LARGE B-CELL LYMPHOMA
     Dosage: ON 28/FEB/2019, HE RECEIVED LAST DOSE OF RITUXIMAB 600 MG PRIOR TO ONSET OF SERIOUS ADVERSE EVENT.
     Route: 042
     Dates: start: 20190228
  12. CLOPIDOGREL [Concomitant]
     Active Substance: CLOPIDOGREL BISULFATE
     Indication: MYOCARDIAL ISCHAEMIA
     Route: 048
     Dates: start: 201712
  13. ALLOPURINOL. [Concomitant]
     Active Substance: ALLOPURINOL
     Route: 048
     Dates: start: 20190227
  14. PREDNISONE. [Suspect]
     Active Substance: PREDNISONE
     Indication: DIFFUSE LARGE B-CELL LYMPHOMA
     Dosage: ON 28/FEB/2019, HE RECEIVED THE LAST DOSE OF PREDNISONE 100 MG PRIOR TO SERIOUS ADVERSE EVENT.?PREDN
     Route: 042
     Dates: start: 20190228
  15. COCODAMOL [Concomitant]
     Active Substance: ACETAMINOPHEN\CODEINE PHOSPHATE
     Indication: RHEUMATOID ARTHRITIS
     Route: 048
     Dates: start: 201207
  16. GLYCERYL TRINITRATE [Concomitant]
     Active Substance: NITROGLYCERIN
     Indication: MYOCARDIAL ISCHAEMIA
     Route: 048
     Dates: start: 201401
  17. PARACETAMOL [Concomitant]
     Active Substance: ACETAMINOPHEN
     Indication: PAIN IN EXTREMITY
     Route: 048
     Dates: start: 201810
  18. PACKED RBC [Concomitant]
     Indication: ANAEMIA
     Route: 042
     Dates: start: 20190301, end: 20190301
  19. GLICLAZIDE [Concomitant]
     Active Substance: GLICLAZIDE
     Indication: TYPE 2 DIABETES MELLITUS
     Route: 048
     Dates: start: 199201
  20. SAXAGLIPTIN [Concomitant]
     Active Substance: SAXAGLIPTIN
     Indication: TYPE 2 DIABETES MELLITUS
     Route: 048
     Dates: start: 201212
  21. MONOFER [Concomitant]
     Active Substance: IRON ISOMALTOSIDE 1000
     Indication: IRON DEFICIENCY
     Route: 042
     Dates: start: 20190227, end: 20190227
  22. ATORVASTATIN [Concomitant]
     Active Substance: ATORVASTATIN
     Indication: MYOCARDIAL ISCHAEMIA
     Route: 048
     Dates: start: 201712
  23. SENNA [Concomitant]
     Active Substance: SENNA LEAF\SENNOSIDES\SENNOSIDES A AND B
     Indication: CONSTIPATION
     Route: 048
     Dates: start: 201901

REACTIONS (1)
  - Chest pain [Recovered/Resolved]

NARRATIVE: CASE EVENT DATE: 20190301
